FAERS Safety Report 24596224 (Version 4)
Quarter: 2025Q3

REPORT INFORMATION
  Report Type: Spontaneous
  Country: JP (occurrence: JP)
  Receive Date: 20241110
  Receipt Date: 20250809
  Transmission Date: 20251021
  Serious: Yes (Death, Other)
  Sender: ALEXION PHARMACEUTICALS
  Company Number: JP-ASTRAZENECA-240093349_012620_P_1

PATIENT
  Age: 69 Year
  Sex: Female
  Weight: 56 kg

DRUGS (19)
  1. TRUQAP [Suspect]
     Active Substance: CAPIVASERTIB
     Dosage: 4 DAYS IN A ROW, FOLLOWED BY 3 DAYS OFF
     Dates: start: 20240712, end: 20240805
  2. TRUQAP [Suspect]
     Active Substance: CAPIVASERTIB
     Dosage: 4 DAYS IN A ROW, FOLLOWED BY 3 DAYS OFF
     Dates: start: 20240809, end: 20240916
  3. TRUQAP [Suspect]
     Active Substance: CAPIVASERTIB
     Dosage: 4 DAYS IN A ROW, FOLLOWED BY 3 DAYS OFF
     Dates: start: 20240920, end: 20241014
  4. FASLODEX [Suspect]
     Active Substance: FULVESTRANT
     Dates: start: 20170927, end: 20191024
  5. FASLODEX [Suspect]
     Active Substance: FULVESTRANT
     Dates: start: 20211018, end: 20220804
  6. FASLODEX [Suspect]
     Active Substance: FULVESTRANT
     Dates: start: 20240712, end: 20241031
  7. NOLVADEX [Suspect]
     Active Substance: TAMOXIFEN CITRATE
  8. BETAHISTINE MESILATE [Concomitant]
     Active Substance: BETAHISTINE MESILATE
     Indication: Dizziness
  9. BETAHISTINE MESILATE [Concomitant]
     Active Substance: BETAHISTINE MESILATE
  10. BETAHISTINE MESILATE [Concomitant]
     Active Substance: BETAHISTINE MESILATE
  11. METOCLOPRAMIDE [Concomitant]
     Active Substance: METOCLOPRAMIDE
     Indication: Nausea
  12. MIYA-BM [Concomitant]
     Active Substance: CLOSTRIDIUM BUTYRICUM SPORES STRAIN M-55
     Indication: Gastrointestinal disorder prophylaxis
     Dosage: DOSE UNKNOWN
     Dates: start: 20240711, end: 20241014
  13. HERBALS [Concomitant]
     Active Substance: HERBALS
  14. METHYLCOBALAMIN [Concomitant]
     Active Substance: METHYLCOBALAMIN
     Indication: Peripheral sensory neuropathy
     Dates: start: 20221117
  15. FUROSEMIDE [Concomitant]
     Active Substance: FUROSEMIDE
     Indication: Oedema peripheral
     Dates: start: 20240919, end: 20241028
  16. METGLUCO [Concomitant]
     Active Substance: METFORMIN HYDROCHLORIDE
  17. VIBEGRON [Concomitant]
     Active Substance: VIBEGRON
     Indication: Pollakiuria
  18. Gargle [Concomitant]
     Indication: Taste disorder
     Dates: start: 20230105, end: 20241115
  19. POVIDONE-IODINE [Concomitant]
     Active Substance: POVIDONE-IODINE
     Indication: Taste disorder
     Dates: start: 20230105, end: 20241115

REACTIONS (4)
  - Pneumonia [Fatal]
  - Neurogenic bladder [Recovered/Resolved]
  - Erythema multiforme [Recovered/Resolved]
  - Hyperglycaemia [Unknown]

NARRATIVE: CASE EVENT DATE: 20240724
